FAERS Safety Report 8581809-X (Version None)
Quarter: 2012Q3

REPORT INFORMATION
  Report Type: 
  Country: None (occurrence: None)
  Receive Date: 20120809
  Receipt Date: 20120801
  Transmission Date: 20120928
  Serious: Yes (Other)
  Sender: FDA-Public Use
  Company Number: PHHY2011US16215

PATIENT
  Sex: Female
  Weight: 120 kg

DRUGS (10)
  1. SYNTHROID [Concomitant]
     Dosage: 77 UG, QD
     Route: 048
  2. TUSSIONEX [Concomitant]
     Dosage: UNK UKN, UNK
     Route: 048
  3. BENZORATATE [Concomitant]
     Dosage: 100 MG, QD
     Route: 048
  4. ARMODAFINIL [Concomitant]
     Dosage: 100 MG, UNK
     Route: 048
  5. SERTRALINE HYDROCHLORIDE [Concomitant]
     Dosage: 100 MG, QD
     Route: 048
  6. PREMARIN [Concomitant]
     Dosage: 625 MG, QD
     Route: 048
  7. ZOCOR [Concomitant]
     Dosage: 40 MG, QD
     Route: 048
  8. GILENYA [Suspect]
     Indication: MULTIPLE SCLEROSIS
     Dosage: 0.5 MG, QD
     Route: 048
     Dates: start: 20110218
  9. RYNATAN [Concomitant]
     Dosage: UNK UKN, QD
     Route: 048
  10. ALLOPURINOL [Concomitant]
     Dosage: 100 MG, QD
     Route: 048

REACTIONS (7)
  - RASH [None]
  - VITREOUS FLOATERS [None]
  - OPTIC NEURITIS [None]
  - MEMORY IMPAIRMENT [None]
  - RETINAL TEAR [None]
  - OVERDOSE [None]
  - VISUAL IMPAIRMENT [None]
